FAERS Safety Report 8908929 (Version 1)
Quarter: 2012Q4

REPORT INFORMATION
  Report Type: 
  Country: DE (occurrence: DE)
  Receive Date: 20121114
  Receipt Date: 20121114
  Transmission Date: 20130627
  Serious: Yes (Other)
  Sender: FDA-Public Use
  Company Number: DE-ROCHE-1145365

PATIENT
  Age: 30 Year
  Sex: Female

DRUGS (5)
  1. MABTHERA [Suspect]
     Indication: PRODUCT USED FOR UNKNOWN INDICATION
     Dosage: last dose prior to SAE: 26/Sep/2012
     Route: 042
     Dates: start: 20120803, end: 20120926
  2. FENISTIL [Concomitant]
  3. RANITIDINE [Concomitant]
  4. SOLU DACORTIN H [Concomitant]
  5. PARACETAMOL [Concomitant]

REACTIONS (1)
  - Erythema nodosum [Recovered/Resolved]
